FAERS Safety Report 6521906-3 (Version None)
Quarter: 2009Q4

REPORT INFORMATION
  Report Type: 
  Country: None (occurrence: None)
  Receive Date: 20091230
  Receipt Date: 20091216
  Transmission Date: 20100525
  Serious: Yes (Hospitalization)
  Sender: FDA-Public Use
  Company Number: FR-PFIZER INC-2009311414

PATIENT
  Sex: Female

DRUGS (1)
  1. TRIFLUCAN [Suspect]
     Dosage: UNK
     Route: 042
     Dates: start: 20091017, end: 20091023

REACTIONS (1)
  - HEPATITIS CHOLESTATIC [None]
